FAERS Safety Report 15012979 (Version 3)
Quarter: 2018Q4

REPORT INFORMATION
  Report Type: Spontaneous
  Country: US (occurrence: US)
  Receive Date: 20180614
  Receipt Date: 20181207
  Transmission Date: 20190204
  Serious: Yes (Hospitalization, Disabling, Other)
  Sender: FDA-Public Use
  Company Number: US-OTSUKA-2018_015766

PATIENT
  Sex: Female

DRUGS (4)
  1. ABILIFY [Suspect]
     Active Substance: ARIPIPRAZOLE
     Indication: MAJOR DEPRESSION
     Dosage: 5 MG, QD
     Route: 065
     Dates: end: 2014
  2. ABILIFY [Suspect]
     Active Substance: ARIPIPRAZOLE
     Indication: SUBSTANCE ABUSE
  3. ABILIFY [Suspect]
     Active Substance: ARIPIPRAZOLE
     Indication: ANXIETY
  4. ABILIFY [Suspect]
     Active Substance: ARIPIPRAZOLE
     Indication: ALCOHOL ABUSE

REACTIONS (22)
  - Disability [Unknown]
  - Mental disorder [Unknown]
  - Pain [Unknown]
  - Loss of employment [Unknown]
  - Economic problem [Unknown]
  - Suicide attempt [Recovered/Resolved]
  - Condition aggravated [Unknown]
  - Anhedonia [Unknown]
  - Emotional distress [Unknown]
  - Eating disorder [Recovered/Resolved]
  - Bankruptcy [Unknown]
  - Personal relationship issue [Unknown]
  - Injury [Unknown]
  - Compulsive shopping [Recovered/Resolved]
  - Anxiety [Unknown]
  - Gambling disorder [Recovered/Resolved]
  - Suicidal ideation [Recovered/Resolved]
  - Dermatillomania [Recovered/Resolved]
  - Compulsive sexual behaviour [Recovered/Resolved]
  - Sexually transmitted disease [Unknown]
  - Trichotillomania [Recovered/Resolved]
  - Product use in unapproved indication [Unknown]

NARRATIVE: CASE EVENT DATE: 200704
